FAERS Safety Report 4694190-3 (Version None)
Quarter: 2005Q2

REPORT INFORMATION
  Report Type: 
  Country: None (occurrence: None)
  Receive Date: 20050616
  Receipt Date: 20050616
  Transmission Date: 20051028
  Serious: No
  Sender: FDA-Public Use
  Company Number: None

PATIENT
  Age: 18 Year
  Sex: Female
  Weight: 50.3493 kg

DRUGS (1)
  1. ELIDEL [Suspect]
     Indication: ECZEMA
     Dosage: 1 APPLICATION BID

REACTIONS (12)
  - ABDOMINAL PAIN [None]
  - ACNE [None]
  - BODY TINEA [None]
  - DERMATITIS [None]
  - ECZEMA [None]
  - FATIGUE [None]
  - IMPETIGO [None]
  - LETHARGY [None]
  - PARONYCHIA [None]
  - RHINITIS ALLERGIC [None]
  - SKIN PAPILLOMA [None]
  - WHEEZING [None]
